FAERS Safety Report 22164164 (Version 1)
Quarter: 2023Q2

REPORT INFORMATION
  Report Type: Spontaneous
  Country: US (occurrence: US)
  Receive Date: 20230402
  Receipt Date: 20230402
  Transmission Date: 20230721
  Serious: No
  Sender: FDA-Public Use
  Company Number: US-drreddys-SPO/USA/23/0161303

PATIENT
  Age: 49 Year
  Sex: Female

DRUGS (1)
  1. ACCUTANE [Suspect]
     Active Substance: ISOTRETINOIN
     Indication: Product used for unknown indication
     Dates: start: 20220815, end: 20221130

REACTIONS (7)
  - Vision blurred [Unknown]
  - Dry eye [Unknown]
  - Eye pain [Unknown]
  - Dry skin [Unknown]
  - Headache [Unknown]
  - Lip dry [Unknown]
  - Blood insulin increased [Unknown]

NARRATIVE: CASE EVENT DATE: 20221101
